FAERS Safety Report 7679387 (Version 3)
Quarter: 2014Q3

REPORT INFORMATION
  Report Type: Report from Study
  Country: US (occurrence: US)
  Receive Date: 20101123
  Receipt Date: 20140710
  Transmission Date: 20150326
  Serious: Yes (Hospitalization, Other)
  Sender: FDA-Public Use
  Company Number: US-BIOGENIDEC-2010BI040439

PATIENT
  Age: 44 Year
  Sex: Female
  Weight: 77 kg

DRUGS (2)
  1. TYSABRI [Suspect]
     Active Substance: NATALIZUMAB
     Indication: CROHN^S DISEASE
     Route: 042
     Dates: start: 200905, end: 20101108
  2. TYSABRI [Suspect]
     Active Substance: NATALIZUMAB
     Indication: MULTIPLE SCLEROSIS
     Route: 042
     Dates: start: 200905, end: 20101108

REACTIONS (11)
  - Cardiac arrest [Recovered/Resolved]
  - Mobility decreased [Recovered/Resolved]
  - Convulsion [Recovered/Resolved]
  - Dementia [Not Recovered/Not Resolved]
  - Small intestinal bacterial overgrowth [Recovered/Resolved]
  - Gastric infection [Recovered/Resolved]
  - Hypersensitivity [Recovered/Resolved]
  - Autoimmune hepatitis [Not Recovered/Not Resolved]
  - Arthritis [Not Recovered/Not Resolved]
  - Fibromyalgia [Not Recovered/Not Resolved]
  - Anaphylactic shock [Recovered/Resolved]

NARRATIVE: CASE EVENT DATE: 20100628
